FAERS Safety Report 19410944 (Version 1)
Quarter: 2021Q2

REPORT INFORMATION
  Report Type: Spontaneous
  Country: US (occurrence: US)
  Receive Date: 20210614
  Receipt Date: 20210614
  Transmission Date: 20210717
  Serious: Yes (Hospitalization)
  Sender: FDA-Public Use
  Company Number: None

PATIENT
  Age: 75 Year
  Sex: Female
  Weight: 83.25 kg

DRUGS (2)
  1. SELEXIPAG [Concomitant]
     Active Substance: SELEXIPAG
     Dates: start: 20210514, end: 20210519
  2. AMBRISENTAN TABLET [Suspect]
     Active Substance: AMBRISENTAN
     Indication: PULMONARY ARTERIAL HYPERTENSION
     Route: 048

REACTIONS (6)
  - Lumbar vertebral fracture [None]
  - Haematoma [None]
  - Fall [None]
  - Pain in extremity [None]
  - International normalised ratio increased [None]
  - Rib fracture [None]

NARRATIVE: CASE EVENT DATE: 20210614
